APPROVED DRUG PRODUCT: OPTOMYCIN
Active Ingredient: CHLORAMPHENICOL
Strength: 0.5%
Dosage Form/Route: SOLUTION/DROPS;OPHTHALMIC
Application: A062171 | Product #001
Applicant: OPTOPICS LABORATORIES CORP
Approved: Mar 31, 1982 | RLD: No | RS: No | Type: DISCN